FAERS Safety Report 23297436 (Version 2)
Quarter: 2023Q4

REPORT INFORMATION
  Report Type: Report from Study
  Country: NL (occurrence: NL)
  Receive Date: 20231214
  Receipt Date: 20231218
  Transmission Date: 20240110
  Serious: Yes (Other)
  Sender: FDA-Public Use
  Company Number: NL-AstraZeneca-2023A280869

PATIENT
  Sex: Male
  Weight: 4.5 kg

DRUGS (2)
  1. SYNAGIS [Suspect]
     Active Substance: PALIVIZUMAB
     Indication: Premature baby
     Dosage: 15MG/KG MONTHLY
     Route: 030
     Dates: start: 20231014
  2. ZINKOXIDE ZALF [Concomitant]
     Indication: Product used for unknown indication
     Dosage: 100MG/G

REACTIONS (1)
  - Pulmonary artery stenosis [Not Recovered/Not Resolved]
